FAERS Safety Report 5321232-4 (Version None)
Quarter: 2007Q2

REPORT INFORMATION
  Report Type: 
  Country: None (occurrence: None)
  Receive Date: 20070215
  Receipt Date: 20060320
  Transmission Date: 20071010
  Serious: No
  Sender: FDA-Public Use
  Company Number: 200610351BWH

PATIENT
  Age: 75 Year
  Sex: Female
  Weight: 52.6173 kg

DRUGS (5)
  1. SORAFENIB [Suspect]
     Indication: RENAL CELL CARCINOMA STAGE UNSPECIFIED
     Dosage: SEE IMAGE
     Route: 048
     Dates: start: 20050701
  2. SORAFENIB [Suspect]
  3. HEART MEDICATIONS (NOS) [Concomitant]
  4. FLUID MEDICATIONS (NOS) [Concomitant]
  5. POTASSIUM ACETATE [Concomitant]

REACTIONS (9)
  - BLISTER [None]
  - BLOOD POTASSIUM DECREASED [None]
  - COAGULOPATHY [None]
  - DIARRHOEA [None]
  - HYPERTENSION [None]
  - OEDEMA PERIPHERAL [None]
  - RASH [None]
  - VASODILATATION [None]
  - WEIGHT DECREASED [None]
